FAERS Safety Report 9850616 (Version 1)
Quarter: 2013Q4

REPORT INFORMATION
  Report Type: Spontaneous
  Country: US (occurrence: None)
  Receive Date: 20131226
  Receipt Date: 20131226
  Transmission Date: 20140711
  Serious: Yes (Hospitalization)
  Sender: FDA-Public Use
  Company Number: PHEH2013US007118

PATIENT
  Age: 80 Year
  Sex: Female

DRUGS (3)
  1. DIOVAN [Suspect]
     Indication: HYPERTENSION
  2. LOSARTAN HCT [Suspect]
     Dosage: 1 DF (12.5 MG HCT/100 MG LOSART), QD, ORAL
  3. DILTIAZEM [Suspect]

REACTIONS (1)
  - Hypertension [None]
